FAERS Safety Report 4488989-6 (Version None)
Quarter: 2004Q4

REPORT INFORMATION
  Report Type: 
  Country: None (occurrence: None)
  Receive Date: 20041029
  Receipt Date: 20041019
  Transmission Date: 20050328
  Serious: Yes (Death)
  Sender: FDA-Public Use
  Company Number: US-BRISTOL-MYERS SQUIBB COMPANY-12741369

PATIENT
  Age: 58 Year

DRUGS (2)
  1. APAP + ASPIRIN + CAFFEINE [Suspect]
  2. QUETIAPINE [Suspect]
     Route: 048

REACTIONS (1)
  - COMPLETED SUICIDE [None]
